FAERS Safety Report 6409696-6 (Version None)
Quarter: 2009Q4

REPORT INFORMATION
  Report Type: 
  Country: None (occurrence: None)
  Receive Date: 20091022
  Receipt Date: 20091016
  Transmission Date: 20100525
  Serious: Yes (Life-Threatening, Hospitalization)
  Sender: FDA-Public Use
  Company Number: FR-ELI_LILLY_AND_COMPANY-FR200910001339

PATIENT
  Sex: Female

DRUGS (2)
  1. GEMZAR [Suspect]
     Indication: PANCREATIC CARCINOMA
     Dosage: UNK, DAY1 + 8 EVERY 21 DAYS
     Route: 042
     Dates: start: 20090716, end: 20090813
  2. OXALIPLATIN [Concomitant]
     Indication: PANCREATIC CARCINOMA
     Dosage: UNK, DAY 1-21
     Route: 042
     Dates: start: 20090716, end: 20090806

REACTIONS (9)
  - ATRIAL FIBRILLATION [None]
  - BLOOD CULTURE POSITIVE [None]
  - DERMATITIS EXFOLIATIVE [None]
  - GENERAL PHYSICAL HEALTH DETERIORATION [None]
  - GENERALISED OEDEMA [None]
  - INTERSTITIAL LUNG DISEASE [None]
  - METASTASES TO LYMPH NODES [None]
  - NEUTROPHIL COUNT INCREASED [None]
  - PYREXIA [None]
